FAERS Safety Report 5031112-X (Version None)
Quarter: 2006Q2

REPORT INFORMATION
  Report Type: 
  Country: None (occurrence: None)
  Receive Date: 20060621
  Receipt Date: 20060117
  Transmission Date: 20061013
  Serious: Yes (Hospitalization)
  Sender: FDA-Public Use
  Company Number: US-BRISTOL-MYERS SQUIBB COMPANY-13248430

PATIENT
  Age: 68 Year
  Sex: Male
  Weight: 84 kg

DRUGS (24)
  1. GLUCOPHAGE [Suspect]
     Indication: DIABETES MELLITUS NON-INSULIN-DEPENDENT
     Dates: start: 20051101
  2. GLUCOPHAGE XR [Suspect]
     Indication: DIABETES MELLITUS NON-INSULIN-DEPENDENT
     Dosage: DURATION OF THERAPY 3 TO 4 YEARS.
  3. GLUCOTROL XL [Concomitant]
     Dates: end: 20060301
  4. PROCARDIA [Concomitant]
  5. ASCORBIC ACID [Concomitant]
  6. VITAMIN E [Concomitant]
  7. MULTIVITAMIN WITH MINERALS [Concomitant]
  8. VITAMIN B COMPLEX CAP [Concomitant]
  9. ALPHA-LIPOIC ACID [Concomitant]
  10. ACETYL-L-CARNITINE HCL [Concomitant]
  11. SELENIUM SULFIDE [Concomitant]
  12. FLAXSEED OIL [Concomitant]
  13. BORAGE OIL [Concomitant]
  14. LYCOPENE [Concomitant]
  15. LUTEIN [Concomitant]
  16. GARLIC [Concomitant]
  17. OYSTER SHELL CALCIUM [Concomitant]
  18. GRAPESEED EXTRACT [Concomitant]
  19. SAW PALMETTO [Concomitant]
  20. POLICOSANOL [Concomitant]
  21. COENZYME Q10 [Concomitant]
  22. CHONDROITIN SULFATE + GLUCOSAMINE [Concomitant]
  23. L-GLUTAMINE [Concomitant]
  24. SOY PROTEIN [Concomitant]

REACTIONS (2)
  - HYPOAESTHESIA [None]
  - MYOCARDIAL INFARCTION [None]
